FAERS Safety Report 22240728 (Version 1)
Quarter: 2023Q2

REPORT INFORMATION
  Report Type: Spontaneous
  Country: US (occurrence: US)
  Receive Date: 20230421
  Receipt Date: 20230421
  Transmission Date: 20230722
  Serious: No
  Sender: FDA-Public Use
  Company Number: US-MYLANLABS-2023M1041958

PATIENT
  Sex: Male
  Weight: 90.71 kg

DRUGS (1)
  1. CYCLOSPORINE [Suspect]
     Active Substance: CYCLOSPORINE
     Indication: Dry eye
     Dosage: 0.05 PERCENT, QD (USED ONE VIAL ONLY, START DATE: LAST MONDAY)
     Route: 047
     Dates: end: 20230405

REACTIONS (4)
  - Eye pain [Recovered/Resolved]
  - Eye irritation [Recovered/Resolved]
  - Vision blurred [Recovered/Resolved]
  - Drug ineffective [Recovered/Resolved]
